FAERS Safety Report 4780084-1 (Version None)
Quarter: 2005Q3

REPORT INFORMATION
  Report Type: 
  Country: None (occurrence: None)
  Receive Date: 20050914
  Receipt Date: 20050427
  Transmission Date: 20060218
  Serious: Yes (Hospitalization)
  Sender: FDA-Public Use
  Company Number: 163-20785-05040555

PATIENT
  Age: 71 Year
  Sex: Male
  Weight: 90 kg

DRUGS (15)
  1. THALOMID [Suspect]
     Indication: MULTIPLE MYELOMA
     Dosage: 100 MG, DAILY, ORAL
     Route: 048
     Dates: start: 20041117, end: 20050325
  2. DEXAMETHASONE [Suspect]
     Indication: MULTIPLE MYELOMA
     Dosage: 20 MG, DAILY EVERY 21 DAYS ON DAYS 1 TO 4, ORAL
     Route: 048
     Dates: start: 20050221
  3. MELPHALAN (MELPHALAN) [Suspect]
     Indication: MULTIPLE MYELOMA
     Dosage: 280 MG, DAILY, INTRAVENOUS
     Route: 042
     Dates: start: 20041117
  4. MELPHALAN (MELPHALAN) [Suspect]
     Indication: MULTIPLE MYELOMA
     Dosage: 280 MG, DAILY, INTRAVENOUS
     Route: 042
     Dates: start: 20050403
  5. VELCADE [Suspect]
     Indication: MULTIPLE MYELOMA
     Dates: start: 20041117
  6. VELCADE [Suspect]
     Indication: MULTIPLE MYELOMA
     Dates: start: 20041215
  7. PLATINOL [Suspect]
     Indication: MULTIPLE MYELOMA
     Dates: start: 20041117
  8. PLATINOL [Suspect]
     Indication: MULTIPLE MYELOMA
     Dates: start: 20041215
  9. ADRIAMYCIN PFS [Suspect]
     Indication: MULTIPLE MYELOMA
     Dates: start: 20041117
  10. ADRIAMYCIN PFS [Suspect]
     Indication: MULTIPLE MYELOMA
     Dates: start: 20041215
  11. CYTOXAN [Suspect]
     Indication: MULTIPLE MYELOMA
     Dates: start: 20041117
  12. CYTOXAN [Suspect]
     Indication: MULTIPLE MYELOMA
     Dates: start: 20041215
  13. ETOPOSIDE [Suspect]
     Indication: MULTIPLE MYELOMA
     Dates: start: 20041117
  14. ETOPOSIDE [Suspect]
     Indication: MULTIPLE MYELOMA
     Dates: start: 20041215
  15. FLOMAX [Suspect]
     Indication: BENIGN PROSTATIC HYPERPLASIA
     Dosage: ORAL
     Route: 048
     Dates: start: 20040101, end: 20050101

REACTIONS (5)
  - ABDOMINAL PAIN [None]
  - DEHYDRATION [None]
  - DIARRHOEA [None]
  - ORTHOSTATIC HYPOTENSION [None]
  - PYREXIA [None]
